FAERS Safety Report 7770017-8 (Version None)
Quarter: 2011Q3

REPORT INFORMATION
  Report Type: 
  Country: None (occurrence: None)
  Receive Date: 20110922
  Receipt Date: 20100527
  Transmission Date: 20111222
  Serious: No
  Sender: FDA-Public Use
  Company Number: US-ASTRAZENECA-2010SE49330

PATIENT

DRUGS (4)
  1. IMIPRAMINE [Concomitant]
     Dosage: 50-150 MG
     Dates: start: 20050101
  2. EFFEXOR XR [Concomitant]
     Dosage: 37.5-150
     Dates: start: 20050101
  3. DIAZEPAM [Concomitant]
     Dates: start: 20050831
  4. SEROQUEL [Suspect]
     Indication: ANXIETY
     Dosage: 50-300 MG
     Route: 048
     Dates: start: 20050101

REACTIONS (1)
  - PAIN IN EXTREMITY [None]
